FAERS Safety Report 12643498 (Version 1)
Quarter: 2016Q3

REPORT INFORMATION
  Report Type: Spontaneous
  Country: GB (occurrence: GB)
  Receive Date: 20160811
  Receipt Date: 20160811
  Transmission Date: 20161109
  Serious: Yes (Other)
  Sender: FDA-Public Use
  Company Number: GB-AUROBINDO-AUR-APL-2016-10088

PATIENT
  Age: 31 Year
  Sex: Female

DRUGS (7)
  1. SEROXAT [Suspect]
     Active Substance: PAROXETINE HYDROCHLORIDE
     Dosage: 30 MG, QD
     Route: 065
  2. CLOMIPRAMINE HYDROCHLORIDE. [Concomitant]
     Active Substance: CLOMIPRAMINE HYDROCHLORIDE
     Indication: PRODUCT USED FOR UNKNOWN INDICATION
     Dosage: UNK
     Route: 065
     Dates: start: 19970227
  3. SEROXAT [Suspect]
     Active Substance: PAROXETINE HYDROCHLORIDE
     Indication: PRODUCT USED FOR UNKNOWN INDICATION
     Dosage: 20 MG, QD
     Route: 065
     Dates: start: 19960823
  4. SEROXAT [Suspect]
     Active Substance: PAROXETINE HYDROCHLORIDE
     Dosage: 20 MG, QD, ONE EACH MORNING
     Route: 048
     Dates: start: 19961220
  5. SEROXAT [Suspect]
     Active Substance: PAROXETINE HYDROCHLORIDE
     Dosage: UNK
     Route: 048
     Dates: start: 20030520, end: 20030925
  6. SEROXAT [Suspect]
     Active Substance: PAROXETINE HYDROCHLORIDE
     Dosage: 30 MG, QD, HALF TABLET
     Route: 048
     Dates: start: 19970108
  7. PAROXETINE TABLET [Suspect]
     Active Substance: PAROXETINE
     Indication: PERINATAL DEPRESSION
     Dosage: UNK
     Route: 048
     Dates: start: 19960626

REACTIONS (25)
  - Prophylaxis [Unknown]
  - Syncope [Unknown]
  - Disturbance in attention [Unknown]
  - Depression [Unknown]
  - Visual impairment [Unknown]
  - Depressed mood [Unknown]
  - Dizziness [Unknown]
  - Anxiety [Unknown]
  - Sleep disorder [Unknown]
  - Cognitive disorder [Unknown]
  - Bruxism [Unknown]
  - Suicidal ideation [Unknown]
  - Disorientation [Unknown]
  - Amnesia [Unknown]
  - Panic attack [Unknown]
  - Brief psychotic disorder, with postpartum onset [Unknown]
  - Feeling of despair [Unknown]
  - Insomnia [Unknown]
  - Paraesthesia [Unknown]
  - Psychiatric symptom [Unknown]
  - Fatigue [Unknown]
  - Cardiac disorder [Unknown]
  - Drug withdrawal syndrome [Unknown]
  - Vomiting [Unknown]
  - Palpitations [Unknown]

NARRATIVE: CASE EVENT DATE: 1997
